FAERS Safety Report 7606444-9 (Version None)
Quarter: 2011Q3

REPORT INFORMATION
  Report Type: 
  Country: None (occurrence: None)
  Receive Date: 20110705
  Receipt Date: 20110627
  Transmission Date: 20111222
  Serious: Yes (Hospitalization, Other)
  Sender: FDA-Public Use
  Company Number: 2011SP026515

PATIENT
  Sex: Female
  Weight: 62 kg

DRUGS (4)
  1. MIRTAZAPINE [Suspect]
     Indication: DEPRESSION
     Dosage: 45 MG;QD; 30 MG;QD; 15 MG;QD;
  2. MIRTAZAPINE [Suspect]
     Indication: DEPRESSION
     Dosage: 45 MG;QD; 30 MG;QD; 15 MG;QD;
  3. MIRTAZAPINE [Suspect]
     Indication: DEPRESSION
     Dosage: 45 MG;QD; 30 MG;QD; 15 MG;QD;
  4. SEROQUEL [Concomitant]

REACTIONS (5)
  - FOETAL GROWTH RESTRICTION [None]
  - PREGNANCY [None]
  - FOETAL MALNUTRITION [None]
  - INTRA-UTERINE DEATH [None]
  - MATERNAL DRUGS AFFECTING FOETUS [None]
